FAERS Safety Report 17082901 (Version 1)
Quarter: 2019Q4

REPORT INFORMATION
  Report Type: Spontaneous
  Country: US (occurrence: US)
  Receive Date: 20191127
  Receipt Date: 20191127
  Transmission Date: 20200122
  Serious: Yes (Death)
  Sender: FDA-Public Use
  Company Number: NVSC2019US046902

PATIENT
  Sex: Male

DRUGS (1)
  1. MEKINIST [Suspect]
     Active Substance: TRAMETINIB DIMETHYL SULFOXIDE
     Indication: CENTRAL NERVOUS SYSTEM NEOPLASM
     Dosage: TAKE 1/2 TABLET BY MOUTH DAILY
     Route: 048
     Dates: start: 201910

REACTIONS (2)
  - Death [Fatal]
  - Product use in unapproved indication [Unknown]
